FAERS Safety Report 6641140-6 (Version None)
Quarter: 2010Q1

REPORT INFORMATION
  Report Type: 
  Country: None (occurrence: None)
  Receive Date: 20100318
  Receipt Date: 20090713
  Transmission Date: 20100710
  Serious: No
  Sender: FDA-Public Use
  Company Number: US-ASTRAZENECA-2009UW16272

PATIENT
  Sex: Female

DRUGS (1)
  1. ZESTRIL [Suspect]
     Route: 048

REACTIONS (3)
  - CHEST PAIN [None]
  - MALAISE [None]
  - SKIN IRRITATION [None]
